FAERS Safety Report 4337242-X (Version None)
Quarter: 2004Q2

REPORT INFORMATION
  Report Type: 
  Country: None (occurrence: None)
  Receive Date: 20040405
  Receipt Date: 20040218
  Transmission Date: 20050107
  Serious: No
  Sender: FDA-Public Use
  Company Number: 02P-163-0202173-00

PATIENT
  Age: 11 Year
  Sex: Male
  Weight: 27.2158 kg

DRUGS (10)
  1. NORVIR [Suspect]
     Indication: HIV INFECTION
     Dosage: 1040 MG, 2 IN 1 D, PER ORAL
     Route: 048
     Dates: start: 20020829, end: 20020904
  2. NEVIRAPINE [Concomitant]
  3. STAVUDINE [Concomitant]
  4. RISPERDAL [Concomitant]
  5. NEVIRAPINE [Concomitant]
  6. BACTRIM [Concomitant]
  7. CAPTOPRIL [Concomitant]
  8. METHYLPHENIDATE HCL [Concomitant]
  9. PAROXETINE HCL [Concomitant]
  10. CETIRIZINE HCL [Concomitant]

REACTIONS (4)
  - ACCIDENTAL OVERDOSE [None]
  - AGITATION [None]
  - HEPATIC FUNCTION ABNORMAL [None]
  - MEDICATION ERROR [None]
